FAERS Safety Report 5867569-1 (Version None)
Quarter: 2008Q3

REPORT INFORMATION
  Report Type: 
  Country: None (occurrence: None)
  Receive Date: 20080902
  Receipt Date: 20071023
  Transmission Date: 20090109
  Serious: No
  Sender: FDA-Public Use
  Company Number: US-ABBOTT-07P-163-0422222-00

PATIENT
  Sex: Female
  Weight: 60.382 kg

DRUGS (3)
  1. DEPAKOTE ER [Suspect]
     Indication: CONVULSION
     Route: 048
     Dates: start: 19820101
  2. MYCALIN [Concomitant]
     Indication: CONVULSION
     Route: 048
  3. ETHOTOIN [Concomitant]
     Indication: CONVULSION
     Route: 048

REACTIONS (3)
  - NERVE COMPRESSION [None]
  - OSTEOPENIA [None]
  - OSTEOPOROSIS [None]
